FAERS Safety Report 9142583 (Version 2)
Quarter: 2013Q2

REPORT INFORMATION
  Report Type: Spontaneous
  Country: FR (occurrence: FR)
  Receive Date: 20130306
  Receipt Date: 20130402
  Transmission Date: 20140414
  Serious: No
  Sender: FDA-Public Use
  Company Number: FR-JNJFOC-20130213447

PATIENT
  Age: 64 Year
  Sex: Female
  Weight: 70 kg

DRUGS (6)
  1. DUROGESIC [Suspect]
     Indication: ANALGESIC THERAPY
     Route: 062
  2. DUROGESIC [Suspect]
     Indication: ANALGESIC THERAPY
     Route: 062
     Dates: start: 20130213
  3. VOGALENE [Concomitant]
     Route: 065
  4. LAMALINE [Concomitant]
     Route: 065
  5. OMEPRAZOLE [Concomitant]
     Route: 065
  6. KETOPROFEN [Concomitant]
     Route: 065

REACTIONS (4)
  - Application site discolouration [Recovered/Resolved]
  - Breast discolouration [Not Recovered/Not Resolved]
  - Inappropriate schedule of drug administration [Unknown]
  - Drug administered at inappropriate site [Recovered/Resolved]
